FAERS Safety Report 7436771-X (Version None)
Quarter: 2011Q2

REPORT INFORMATION
  Report Type: 
  Country: None (occurrence: None)
  Receive Date: 20110426
  Receipt Date: 20110421
  Transmission Date: 20111010
  Serious: Yes (Death, Other)
  Sender: FDA-Public Use
  Company Number: US-ASTELLAS-2011US001675

PATIENT
  Sex: Female

DRUGS (1)
  1. PROGRAF [Suspect]
     Indication: RENAL AND PANCREAS TRANSPLANT
     Dosage: 2 MG AM, 1.5 MG PM
     Route: 048
     Dates: end: 20110220

REACTIONS (3)
  - DEATH [None]
  - OFF LABEL USE [None]
  - HYPOXIA [None]
